FAERS Safety Report 22169545 (Version 1)
Quarter: 2023Q2

REPORT INFORMATION
  Report Type: Spontaneous
  Country: US (occurrence: US)
  Receive Date: 20230404
  Receipt Date: 20230404
  Transmission Date: 20230722
  Serious: No
  Sender: FDA-Public Use
  Company Number: US-JNJFOC-20230342898

PATIENT
  Age: 70 Year

DRUGS (1)
  1. WOMENS ROGAINE UNSCENTED [Suspect]
     Active Substance: MINOXIDIL
     Indication: Alopecia
     Dosage: 1 PUMP/DAY, 2-3 DAYS/WEEK
     Route: 061
     Dates: start: 202302

REACTIONS (4)
  - Poor quality product administered [Unknown]
  - Incorrect dose administered [Unknown]
  - Inappropriate schedule of product administration [Unknown]
  - Product container issue [Unknown]

NARRATIVE: CASE EVENT DATE: 20230201
